FAERS Safety Report 4635067-9 (Version None)
Quarter: 2005Q2

REPORT INFORMATION
  Report Type: 
  Country: None (occurrence: None)
  Receive Date: 20050414
  Receipt Date: 20050322
  Transmission Date: 20051028
  Serious: Yes (Hospitalization)
  Sender: FDA-Public Use
  Company Number: JP-ROCHE-399902

PATIENT
  Age: 32 Year
  Sex: Female

DRUGS (10)
  1. TAMIFLU [Suspect]
     Indication: INFLUENZA
     Route: 048
     Dates: start: 20050316, end: 20050317
  2. LORATADINE [Suspect]
     Route: 048
     Dates: start: 20050312
  3. FLOMOX [Suspect]
     Route: 048
     Dates: start: 20050316
  4. TRANSAMIN [Suspect]
     Indication: INFLUENZA
     Route: 048
     Dates: start: 20050316
  5. CALONAL [Suspect]
     Indication: INFLUENZA
     Route: 048
     Dates: start: 20050316
  6. KN SOL. 3B [Suspect]
     Indication: INFLUENZA
     Route: 041
     Dates: start: 20050316
  7. UNKNOWN DRUG FOR INFLUENZA [Suspect]
     Indication: INFLUENZA
     Dosage: DRUG NAME REPORTED AS NYROZIN
     Route: 041
     Dates: start: 20050316
  8. FOSMICIN S [Suspect]
     Indication: INFLUENZA
     Route: 041
     Dates: start: 20050316
  9. ISODINE [Suspect]
     Dosage: ROUTE: OROPHARINGEAL/GARGLE
     Route: 050
  10. UNSPECIFIED DRUG [Concomitant]
     Dosage: DRUG NAME: TAUNUS AQUA SPRAY. FORMULATION: SPRAY

REACTIONS (5)
  - BLISTER [None]
  - GENERALISED ERYTHEMA [None]
  - HEPATITIS [None]
  - PNEUMONIA MYCOPLASMAL [None]
  - STEVENS-JOHNSON SYNDROME [None]
